FAERS Safety Report 13911321 (Version 2)
Quarter: 2018Q4

REPORT INFORMATION
  Report Type: Report from Study
  Country: US (occurrence: US)
  Receive Date: 20170828
  Receipt Date: 20181213
  Transmission Date: 20190204
  Serious: Yes (Hospitalization, Other)
  Sender: FDA-Public Use
  Company Number: US-SA-2017SA136256

PATIENT
  Age: 12 Year
  Sex: Male

DRUGS (3)
  1. ELIGLUSTAT. [Suspect]
     Active Substance: ELIGLUSTAT
     Indication: GAUCHER^S DISEASE
     Dosage: 21 MG (84.0),QD
     Route: 048
     Dates: start: 20170510
  2. ELIGLUSTAT. [Suspect]
     Active Substance: ELIGLUSTAT
     Dosage: 42 MG,QD
     Route: 048
     Dates: start: 2017
  3. CEREZYME [Concomitant]
     Active Substance: IMIGLUCERASE
     Dosage: UNK UNK,UNK
     Route: 065
     Dates: start: 20060830

REACTIONS (10)
  - Urticaria [Recovering/Resolving]
  - Incorrect dose administered [Unknown]
  - Malaise [Recovering/Resolving]
  - Cough [Recovering/Resolving]
  - Gastrointestinal inflammation [Not Recovered/Not Resolved]
  - Impaired gastric emptying [Not Recovered/Not Resolved]
  - Pyrexia [Recovering/Resolving]
  - Intestinal transit time decreased [Not Recovered/Not Resolved]
  - Gastrointestinal disorder [Not Recovered/Not Resolved]
  - Therapy cessation [Unknown]

NARRATIVE: CASE EVENT DATE: 20171204
